FAERS Safety Report 9260260 (Version 3)
Quarter: 2013Q2

REPORT INFORMATION
  Report Type: Spontaneous
  Country: US (occurrence: US)
  Receive Date: 20130429
  Receipt Date: 20130606
  Transmission Date: 20140414
  Serious: Yes (Other)
  Sender: FDA-Public Use
  Company Number: US-PFIZER INC-2013133403

PATIENT
  Age: 76 Year
  Sex: Female
  Weight: 47.62 kg

DRUGS (8)
  1. PRISTIQ [Suspect]
     Dosage: UNK
  2. EFFEXOR XR [Suspect]
     Indication: MAJOR DEPRESSION
     Dosage: 150 MG, 1X/DAY
     Route: 048
     Dates: start: 2005
  3. VENTOLIN [Suspect]
     Indication: CHRONIC OBSTRUCTIVE PULMONARY DISEASE
     Dosage: UNK
  4. PROZAC [Suspect]
     Indication: DEPRESSION
     Dosage: UNK
     Dates: start: 201304, end: 201304
  5. EYLEA [Concomitant]
     Indication: MACULAR DEGENERATION
     Dosage: UNK
  6. LEVOTHYROXINE [Concomitant]
     Indication: HYPOTHYROIDISM
     Dosage: 50 UG, UNK
  7. VITAMIN D [Concomitant]
     Indication: VITAMIN D DECREASED
     Dosage: UNK
  8. WELLBUTRIN [Concomitant]
     Indication: DEPRESSION
     Dosage: UNK

REACTIONS (13)
  - Dementia [Unknown]
  - Drug ineffective [Not Recovered/Not Resolved]
  - Feeling abnormal [Unknown]
  - Decreased appetite [Unknown]
  - Libido decreased [Unknown]
  - Amnesia [Unknown]
  - Weight decreased [Unknown]
  - Eye disorder [Unknown]
  - Tremor [Not Recovered/Not Resolved]
  - Anxiety [Not Recovered/Not Resolved]
  - Hunger [Unknown]
  - Nausea [Unknown]
  - Malaise [Unknown]
